FAERS Safety Report 11631188 (Version 2)
Quarter: 2016Q1

REPORT INFORMATION
  Report Type: Spontaneous
  Country: US (occurrence: US)
  Receive Date: 20151014
  Receipt Date: 20160106
  Transmission Date: 20160525
  Serious: No
  Sender: FDA-Public Use
  Company Number: US-009507513-1510USA004259

PATIENT
  Age: 27 Year
  Sex: Female
  Weight: 90.7 kg

DRUGS (3)
  1. NEXPLANON [Suspect]
     Active Substance: ETONOGESTREL
     Dosage: 68 MG, ONE ROD PER 3 YEARS
     Route: 030
     Dates: start: 20150929, end: 20150929
  2. VITAMINS (UNSPECIFIED) [Concomitant]
     Active Substance: VITAMINS
  3. NEXPLANON [Suspect]
     Active Substance: ETONOGESTREL
     Indication: CONTRACEPTION
     Dosage: 68 MG, ONE ROD PER 3 YEARS
     Route: 030
     Dates: start: 20150929

REACTIONS (5)
  - Device difficult to use [Recovered/Resolved]
  - Incorrect route of drug administration [Unknown]
  - Product quality issue [Unknown]
  - No adverse event [Unknown]
  - Device dislocation [Unknown]

NARRATIVE: CASE EVENT DATE: 2015
